FAERS Safety Report 9625583 (Version 3)
Quarter: 2014Q1

REPORT INFORMATION
  Report Type: Spontaneous
  Country: US (occurrence: US)
  Receive Date: 20131016
  Receipt Date: 20140102
  Transmission Date: 20141002
  Serious: Yes (Hospitalization, Other)
  Sender: FDA-Public Use
  Company Number: US-ROCHE-1289560

PATIENT
  Age: 72 Year
  Sex: Female
  Weight: 71 kg

DRUGS (16)
  1. HERCEPTIN [Suspect]
     Indication: BREAST CANCER METASTATIC
     Route: 042
     Dates: start: 20130611, end: 20130819
  2. HERCEPTIN [Suspect]
     Route: 042
     Dates: start: 20130924
  3. PERJETA [Suspect]
     Indication: BREAST CANCER METASTATIC
     Route: 042
     Dates: start: 20130611, end: 20130819
  4. TAXOTERE [Suspect]
     Indication: BREAST CANCER METASTATIC
     Route: 042
  5. TAXOL [Suspect]
     Indication: PRODUCT USED FOR UNKNOWN INDICATION
     Route: 042
     Dates: start: 20130729, end: 20130819
  6. LEVEMIR [Concomitant]
     Route: 065
  7. BENADRYL (UNITED STATES) [Concomitant]
     Route: 042
     Dates: start: 20130611
  8. PEPCID [Concomitant]
     Route: 065
     Dates: start: 20130611
  9. DEXAMETHASONE [Concomitant]
     Route: 065
     Dates: start: 20130611
  10. CYMBALTA [Concomitant]
     Route: 065
  11. GLIMEPIRIDE [Concomitant]
     Route: 065
  12. METFORMIN [Concomitant]
     Route: 065
  13. SIMVASTATIN [Concomitant]
     Route: 065
  14. FASLODEX [Concomitant]
     Route: 065
  15. NEURONTIN (UNITED STATES) [Concomitant]
     Route: 065
  16. HYDRALAZINE [Concomitant]
     Route: 065

REACTIONS (5)
  - Dyspnoea exertional [Recovered/Resolved]
  - Dyspnoea [Recovered/Resolved]
  - Cough [Recovered/Resolved]
  - Pneumonitis [Recovered/Resolved]
  - Interstitial lung disease [Recovered/Resolved]
